FAERS Safety Report 5871536-1 (Version None)
Quarter: 2008Q3

REPORT INFORMATION
  Report Type: 
  Country: None (occurrence: None)
  Receive Date: 20080905
  Receipt Date: 20080402
  Transmission Date: 20090109
  Serious: No
  Sender: FDA-Public Use
  Company Number: A0718937A

PATIENT
  Age: 48 Year
  Sex: Female

DRUGS (4)
  1. REQUIP [Suspect]
     Indication: FATIGUE
     Dosage: .25MG THREE TIMES PER DAY
     Route: 048
     Dates: start: 20080311
  2. PRILOSEC [Concomitant]
  3. LEVOTHYROXINE SODIUM [Concomitant]
  4. LOVASTATIN [Concomitant]

REACTIONS (2)
  - FEELING ABNORMAL [None]
  - NAUSEA [None]
